FAERS Safety Report 9028921 (Version 1)
Quarter: 2013Q1

REPORT INFORMATION
  Report Type: Spontaneous
  Country: US (occurrence: US)
  Receive Date: 20130124
  Receipt Date: 20130124
  Transmission Date: 20140127
  Serious: No
  Sender: FDA-Public Use
  Company Number: PHEH2012US020605

PATIENT
  Age: 44 Year
  Sex: Male

DRUGS (11)
  1. TASIGNA [Suspect]
     Indication: CHRONIC MYELOID LEUKAEMIA (IN REMISSION)
     Dosage: 150 MG, BID
     Route: 048
     Dates: start: 20120920
  2. TASIGNA [Suspect]
     Dosage: 300 MG, BID
     Route: 048
     Dates: start: 20120920, end: 20121017
  3. TASIGNA [Suspect]
     Dosage: 150 MG, BID
     Route: 048
  4. TASIGNA [Suspect]
     Dosage: 3 DF, DAILY
     Route: 048
  5. TASIGNA [Suspect]
     Dosage: 300 MG, BID
     Route: 048
     Dates: end: 20130117
  6. TASIGNA [Suspect]
     Dosage: 150 MG, BID
     Route: 048
  7. AMOXICILLIN [Concomitant]
  8. IBUPROFEN [Concomitant]
  9. LIPITOR [Concomitant]
  10. NEXUM [Concomitant]
  11. DIOVAN [Concomitant]

REACTIONS (4)
  - Visual impairment [Recovered/Resolved]
  - Insomnia [Not Recovered/Not Resolved]
  - Rash pruritic [Unknown]
  - Rash generalised [Unknown]
